FAERS Safety Report 4496852-X (Version None)
Quarter: 2004Q4

REPORT INFORMATION
  Report Type: 
  Country: None (occurrence: None)
  Receive Date: 20041109
  Receipt Date: 20041029
  Transmission Date: 20050328
  Serious: Yes (Other)
  Sender: FDA-Public Use
  Company Number: GB-GLAXOSMITHKLINE-B0349972A

PATIENT
  Age: 38 Year
  Sex: Female
  Weight: 65 kg

DRUGS (2)
  1. PAROXETINE [Suspect]
     Indication: DEPRESSION
     Dosage: 30MG UNKNOWN
     Route: 048
     Dates: start: 20020116, end: 20020730
  2. CELECOXIB [Concomitant]
     Indication: ANKYLOSING SPONDYLITIS
     Dosage: 200MG PER DAY
     Route: 065
     Dates: start: 20020116, end: 20030825

REACTIONS (5)
  - DIZZINESS [None]
  - DRUG WITHDRAWAL SYNDROME [None]
  - SUICIDAL IDEATION [None]
  - TREMOR [None]
  - VERTIGO [None]
